FAERS Safety Report 14918135 (Version 1)
Quarter: 2018Q2

REPORT INFORMATION
  Report Type: Spontaneous
  Country: FR (occurrence: FR)
  Receive Date: 20180521
  Receipt Date: 20180521
  Transmission Date: 20180711
  Serious: Yes (Other)
  Sender: FDA-Public Use
  Company Number: FR-MERCK KGAA-2048123

PATIENT
  Sex: Female

DRUGS (1)
  1. NOVOTHYROX [Suspect]
     Active Substance: LEVOTHYROXINE SODIUM
     Indication: PRODUCT USED FOR UNKNOWN INDICATION

REACTIONS (18)
  - Glomerular filtration rate decreased [None]
  - Vitamin D deficiency [None]
  - Platelet count decreased [None]
  - Burning sensation [None]
  - Alopecia [None]
  - Depression [None]
  - Fatigue [None]
  - Low density lipoprotein increased [None]
  - Blood culture positive [None]
  - Sleep disorder [None]
  - Gait disturbance [None]
  - Decreased interest [None]
  - White blood cell count [None]
  - Blood creatinine abnormal [None]
  - Pain in extremity [Recovered/Resolved]
  - Mood altered [None]
  - Thyroxine abnormal [None]
  - Lymphocyte count abnormal [None]

NARRATIVE: CASE EVENT DATE: 20170705
